FAERS Safety Report 7959251-1 (Version None)
Quarter: 2011Q4

REPORT INFORMATION
  Report Type: 
  Country: None (occurrence: None)
  Receive Date: 20111206
  Receipt Date: 20111129
  Transmission Date: 20120403
  Serious: Yes (Other)
  Sender: FDA-Public Use
  Company Number: BR-PFIZER INC-2011292157

PATIENT
  Age: 63 Year
  Sex: Male

DRUGS (1)
  1. VARENICLINE TARTRATE [Suspect]
     Indication: SMOKING CESSATION THERAPY
     Dosage: UNK
     Route: 048
     Dates: start: 20110101

REACTIONS (4)
  - VOMITING [None]
  - CORONARY ARTERY OCCLUSION [None]
  - CARDIAC DISORDER [None]
  - NAUSEA [None]
